FAERS Safety Report 10172415 (Version 3)
Quarter: 2014Q3

REPORT INFORMATION
  Report Type: Spontaneous
  Country: US (occurrence: US)
  Receive Date: 20140515
  Receipt Date: 20140702
  Transmission Date: 20150326
  Serious: No
  Sender: FDA-Public Use
  Company Number: US-009507513-1005USA00206

PATIENT
  Sex: Male

DRUGS (1)
  1. PROPECIA [Suspect]
     Active Substance: FINASTERIDE
     Indication: ALOPECIA
     Dosage: 1 MG, QD
     Route: 048
     Dates: start: 20100201

REACTIONS (27)
  - Balance disorder [Unknown]
  - Motion sickness [Unknown]
  - Amnesia [Not Recovered/Not Resolved]
  - Fatigue [Not Recovered/Not Resolved]
  - Hypogonadism [Unknown]
  - Varicocele [Unknown]
  - Paraesthesia [Unknown]
  - Anxiety [Unknown]
  - Fatigue [Unknown]
  - Anxiety [Not Recovered/Not Resolved]
  - Asthma [Unknown]
  - Cognitive disorder [Not Recovered/Not Resolved]
  - Blood testosterone decreased [Unknown]
  - Vision blurred [Unknown]
  - Semen volume decreased [Unknown]
  - Libido decreased [Unknown]
  - Anxiety [Not Recovered/Not Resolved]
  - Infection [Unknown]
  - Erectile dysfunction [Unknown]
  - Dizziness [Not Recovered/Not Resolved]
  - Semen discolouration [Unknown]
  - Hypotrichosis [Unknown]
  - Craniocerebral injury [Unknown]
  - Loss of libido [Not Recovered/Not Resolved]
  - Semen analysis abnormal [Not Recovered/Not Resolved]
  - Depression [Not Recovered/Not Resolved]
  - Sexual dysfunction [Unknown]

NARRATIVE: CASE EVENT DATE: 2010
